FAERS Safety Report 14649538 (Version 1)
Quarter: 2018Q1

REPORT INFORMATION
  Report Type: Spontaneous
  Country: US (occurrence: US)
  Receive Date: 20180316
  Receipt Date: 20180316
  Transmission Date: 20180509
  Serious: Yes (Hospitalization)
  Sender: FDA-Public Use
  Company Number: US-ALLERGAN-1813806US

PATIENT
  Age: 57 Year
  Sex: Female

DRUGS (8)
  1. VIBERZI [Suspect]
     Active Substance: ELUXADOLINE
     Indication: IRRITABLE BOWEL SYNDROME
     Dosage: 100 MG, QD
     Route: 048
     Dates: start: 201709
  2. LYRICA [Concomitant]
     Active Substance: PREGABALIN
     Dosage: 150 MG, BID
     Route: 048
  3. VIBERZI [Suspect]
     Active Substance: ELUXADOLINE
     Dosage: 75 MG, QD
     Route: 048
     Dates: start: 201709
  4. CYCLOBENZAPRINE. [Concomitant]
     Active Substance: CYCLOBENZAPRINE
     Dosage: 10 MG, TID
     Route: 065
  5. CRESTOR [Concomitant]
     Active Substance: ROSUVASTATIN CALCIUM
     Dosage: 40 MG, QD
     Route: 048
  6. AMITRIPTYLINE [Concomitant]
     Active Substance: AMITRIPTYLINE
     Dosage: 75 MG, QHS
     Route: 048
  7. REGLAN [Concomitant]
     Active Substance: METOCLOPRAMIDE HYDROCHLORIDE
     Dosage: 10 MG, QD
     Route: 048
  8. BACLOFEN. [Concomitant]
     Active Substance: BACLOFEN
     Dosage: 1 DF, TID
     Route: 048

REACTIONS (4)
  - Colitis ischaemic [Unknown]
  - Contraindicated product administered [Unknown]
  - Colitis ulcerative [Unknown]
  - Inappropriate schedule of drug administration [Unknown]

NARRATIVE: CASE EVENT DATE: 20180213
